FAERS Safety Report 7050246-1 (Version None)
Quarter: 2010Q4

REPORT INFORMATION
  Report Type: 
  Country: None (occurrence: None)
  Receive Date: 20101018
  Receipt Date: 20101010
  Transmission Date: 20110411
  Serious: Yes (Other)
  Sender: FDA-Public Use
  Company Number: US-BAYER-201018677BCC

PATIENT
  Age: 50 Year
  Sex: Female
  Weight: 64 kg

DRUGS (4)
  1. ALEVE (CAPLET) [Suspect]
     Indication: PAIN
     Dosage: TOTAL DAILY DOSE: 220 MG  UNIT DOSE: 220 MG
     Route: 048
     Dates: start: 20060101, end: 20060101
  2. ALEVE (CAPLET) [Suspect]
     Dosage: TOTAL DAILY DOSE: 440 MG  UNIT DOSE: 220 MG
     Route: 048
     Dates: start: 20100730, end: 20100730
  3. ESTROGEN [Concomitant]
     Dosage: TOOK AT NIGHT
     Route: 065
     Dates: start: 19880101
  4. ESTRACE [Concomitant]
     Dosage: TOTAL DAILY DOSE: 0.5 MG  UNIT DOSE: 0.5 MG
     Route: 048

REACTIONS (8)
  - ANAPHYLACTIC SHOCK [None]
  - BLOOD PRESSURE DECREASED [None]
  - BURNING SENSATION [None]
  - BURNING SENSATION MUCOSAL [None]
  - EYE SWELLING [None]
  - LOSS OF CONSCIOUSNESS [None]
  - PALMAR ERYTHEMA [None]
  - PARAESTHESIA ORAL [None]
